FAERS Safety Report 4863939-9 (Version None)
Quarter: 2005Q4

REPORT INFORMATION
  Report Type: 
  Country: None (occurrence: None)
  Receive Date: 20051219
  Receipt Date: 20051219
  Transmission Date: 20060501
  Serious: Yes (Life-Threatening)
  Sender: FDA-Public Use
  Company Number: None

PATIENT
  Sex: Male
  Weight: 78 kg

DRUGS (3)
  1. LITHIUM [Suspect]
     Dosage: 500 MG  3 PER DAY PO
     Route: 048
     Dates: start: 19960531, end: 20011231
  2. LAMICTAL [Suspect]
     Indication: BIPOLAR I DISORDER
     Dosage: 25  3 PER DAY PO
     Route: 048
     Dates: start: 20020518, end: 20031111
  3. LAMOTRIGINE [Suspect]

REACTIONS (2)
  - CONDITION AGGRAVATED [None]
  - MANIA [None]
